FAERS Safety Report 19358558 (Version 2)
Quarter: 2021Q2

REPORT INFORMATION
  Report Type: Spontaneous
  Country: JP (occurrence: JP)
  Receive Date: 20210601
  Receipt Date: 20210624
  Transmission Date: 20210717
  Serious: Yes (Death, Other)
  Sender: FDA-Public Use
  Company Number: JP-CELLTRION INC.-2021JP007351

PATIENT

DRUGS (8)
  1. TRASTUZUMAB (UNKNOWN) [Suspect]
     Active Substance: TRASTUZUMAB
     Indication: BREAST CANCER METASTATIC
     Dosage: 8 MG/KG EVERY 3 WEEKS (1 MONTH AFTER ADMISSION)
  2. OXYCODONE [Concomitant]
     Active Substance: OXYCODONE
     Indication: PALLIATIVE CARE
  3. CELECOXIB. [Concomitant]
     Active Substance: CELECOXIB
     Indication: PALLIATIVE CARE
     Dosage: 200 MG, QD
  4. CELECOXIB. [Concomitant]
     Active Substance: CELECOXIB
     Indication: PAIN
  5. OXYCODONE [Concomitant]
     Active Substance: OXYCODONE
     Indication: PAIN
     Dosage: FAST RELEASE 2.5 MG
  6. PACLITAXEL. [Suspect]
     Active Substance: PACLITAXEL
     Dosage: 143 MG/M2 EVERY 3 WEEKS WITH A REDUCED DOSE DENSITY (SECOND COURSE)
  7. MOHS PASTE [Concomitant]
     Indication: NEOPLASM
     Dosage: UNK
  8. PACLITAXEL. [Suspect]
     Active Substance: PACLITAXEL
     Indication: BREAST CANCER METASTATIC
     Dosage: 80 MG/M2 DAY 1, 8, 15 (1 MONTH AFTER ADMISSION)

REACTIONS (3)
  - Death [Fatal]
  - Disease progression [Fatal]
  - Neutropenia [Unknown]
